FAERS Safety Report 9315422 (Version 3)
Quarter: 2013Q2

REPORT INFORMATION
  Report Type: Spontaneous
  Country: US (occurrence: US)
  Receive Date: 20130529
  Receipt Date: 20130611
  Transmission Date: 20140414
  Serious: Yes (Other)
  Sender: FDA-Public Use
  Company Number: US-PFIZER INC-2013161113

PATIENT
  Age: 68 Year
  Sex: Male
  Weight: 107 kg

DRUGS (8)
  1. LIPITOR [Suspect]
     Indication: BLOOD CHOLESTEROL INCREASED
     Dosage: 40 MG, DAILY
     Dates: start: 2000
  2. PROCARDIA [Suspect]
     Indication: HYPERTENSION
     Dosage: 60 MG, DAILY
     Dates: start: 2012
  3. PROTONIX [Suspect]
     Indication: GASTROOESOPHAGEAL REFLUX DISEASE
     Dosage: 40 MG, DAILY
  4. PROTONIX [Suspect]
     Dosage: 40 MG, DAILY
     Dates: start: 201202
  5. PRILOSEC [Suspect]
     Indication: GASTROOESOPHAGEAL REFLUX DISEASE
     Dosage: UNK
     Dates: start: 201202, end: 201202
  6. NOVOLOG [Concomitant]
     Indication: DIABETES MELLITUS
     Dosage: 18 IU, 1X/DAY, IN THE MORNING
     Dates: start: 201302
  7. NOVOLOG [Concomitant]
     Dosage: 14 IU, 1X/DAY, AT NIGHT
     Dates: start: 201302
  8. ATORVASTATIN CALCIUM [Concomitant]
     Indication: BLOOD CHOLESTEROL INCREASED
     Dosage: UNK
     Dates: start: 201301

REACTIONS (4)
  - Cardiac disorder [Unknown]
  - Hernia [Unknown]
  - Drug ineffective [Unknown]
  - Malaise [Unknown]
